FAERS Safety Report 16365262 (Version 1)
Quarter: 2019Q2

REPORT INFORMATION
  Report Type: Spontaneous
  Country: SE (occurrence: SE)
  Receive Date: 20190529
  Receipt Date: 20190529
  Transmission Date: 20190711
  Serious: Yes (Hospitalization)
  Sender: FDA-Public Use
  Company Number: SE-ASTRAZENECA-2019SE76281

PATIENT
  Age: 69 Year
  Sex: Female

DRUGS (3)
  1. ONBREZ BREEZHALER [Concomitant]
     Active Substance: INDACATEROL
     Dosage: ^150/300^
     Dates: start: 20120403, end: 20150310
  2. EKLIRA GENUAIR [Suspect]
     Active Substance: ACLIDINIUM BROMIDE
     Indication: CHRONIC OBSTRUCTIVE PULMONARY DISEASE
     Route: 055
     Dates: start: 20140307, end: 20140505
  3. IMOVANE [Concomitant]
     Active Substance: ZOPICLONE
     Dosage: 3.75MG UNKNOWN

REACTIONS (7)
  - Dysphonia [Not Recovered/Not Resolved]
  - Heart rate increased [Not Recovered/Not Resolved]
  - Atrial fibrillation [Not Recovered/Not Resolved]
  - Dyspnoea at rest [Not Recovered/Not Resolved]
  - Cardiac failure [Not Recovered/Not Resolved]
  - Glaucoma [Not Recovered/Not Resolved]
  - Vision blurred [Not Recovered/Not Resolved]

NARRATIVE: CASE EVENT DATE: 2014
